FAERS Safety Report 7751748-2 (Version None)
Quarter: 2011Q3

REPORT INFORMATION
  Report Type: 
  Country: None (occurrence: None)
  Receive Date: 20110915
  Receipt Date: 20110909
  Transmission Date: 20111222
  Serious: Yes (Hospitalization)
  Sender: FDA-Public Use
  Company Number: US-BIOGENIDEC-2011BI033040

PATIENT
  Age: 63 Year
  Sex: Male

DRUGS (2)
  1. TYSABRI [Suspect]
     Indication: MULTIPLE SCLEROSIS
     Route: 042
     Dates: start: 20090506, end: 20110622
  2. TYSABRI [Suspect]
     Route: 042
     Dates: start: 20071024, end: 20081008

REACTIONS (2)
  - URINARY TRACT INFECTION [None]
  - INFECTION [None]
